FAERS Safety Report 9411133 (Version 1)
Quarter: 2013Q3

REPORT INFORMATION
  Report Type: Report from Study
  Country: VE (occurrence: VE)
  Receive Date: 20130721
  Receipt Date: 20130721
  Transmission Date: 20140515
  Serious: Yes (Death, Hospitalization)
  Sender: FDA-Public Use
  Company Number: PHHY2013VE075690

PATIENT
  Age: 62 Year
  Sex: Female

DRUGS (3)
  1. SANDOSTATIN LAR [Suspect]
     Indication: COLON CANCER
     Dosage: 30 MG, MONTHLY
     Route: 030
     Dates: start: 201201, end: 201208
  2. SANDOSTATIN [Suspect]
     Indication: COLON CANCER
     Dosage: UNK UKN, WEEKLY
     Route: 058
     Dates: start: 201201, end: 201208
  3. AFINITOR [Suspect]
     Indication: COLON CANCER
     Dosage: 10 MG, DAILY
     Route: 048
     Dates: start: 201206, end: 201208

REACTIONS (5)
  - Colon cancer [Fatal]
  - Metastases to liver [Fatal]
  - Stomatitis [Recovering/Resolving]
  - Weight decreased [Not Recovered/Not Resolved]
  - Decreased appetite [Not Recovered/Not Resolved]
